FAERS Safety Report 6280264-2 (Version None)
Quarter: 2009Q3

REPORT INFORMATION
  Report Type: 
  Country: None (occurrence: None)
  Receive Date: 20090723
  Receipt Date: 20090717
  Transmission Date: 20100115
  Serious: Yes (Hospitalization)
  Sender: FDA-Public Use
  Company Number: US-ASTRAZENECA-2009UW18986

PATIENT
  Age: 52 Year
  Sex: Female
  Weight: 63.5 kg

DRUGS (3)
  1. SEROQUEL [Suspect]
     Indication: STRESS
     Route: 048
     Dates: start: 20070101, end: 20090601
  2. SEROQUEL [Suspect]
     Indication: ANXIETY
     Route: 048
     Dates: start: 20070101, end: 20090601
  3. PARNATE [Suspect]
     Indication: SOCIAL PHOBIA
     Route: 065
     Dates: end: 20090601

REACTIONS (10)
  - BACK PAIN [None]
  - BLOOD PRESSURE INCREASED [None]
  - BODY TEMPERATURE INCREASED [None]
  - COMMUNICATION DISORDER [None]
  - HEADACHE [None]
  - MIGRAINE [None]
  - MUSCULOSKELETAL STIFFNESS [None]
  - PYREXIA [None]
  - URINARY RETENTION [None]
  - URINARY TRACT INFECTION [None]
